FAERS Safety Report 4665674-9 (Version None)
Quarter: 2005Q2

REPORT INFORMATION
  Report Type: 
  Country: None (occurrence: None)
  Receive Date: 20050519
  Receipt Date: 20050510
  Transmission Date: 20051028
  Serious: Yes (Death, Life-Threatening, Other)
  Sender: FDA-Public Use
  Company Number: GB-JNJFOC-20050502388

PATIENT
  Sex: Female
  Weight: 44 kg

DRUGS (7)
  1. REMICADE [Suspect]
     Indication: RHEUMATOID ARTHRITIS
     Route: 042
  2. METHOTREXATE [Concomitant]
     Route: 065
  3. FOLIC ACID [Concomitant]
     Route: 065
  4. THYROXINE [Concomitant]
     Route: 065
  5. RELIFLEX [Concomitant]
     Route: 065
  6. ATENOLOL [Concomitant]
     Route: 065
  7. PARACETAMOL [Concomitant]
     Route: 065

REACTIONS (1)
  - DEATH [None]
